FAERS Safety Report 13297068 (Version 3)
Quarter: 2017Q1

REPORT INFORMATION
  Report Type: Report from Study
  Country: TW (occurrence: TW)
  Receive Date: 20170306
  Receipt Date: 20170323
  Transmission Date: 20170428
  Serious: Yes (Hospitalization)
  Sender: FDA-Public Use
  Company Number: TW-ROCHE-1883293

PATIENT
  Age: 57 Year
  Sex: Female
  Weight: 68.5 kg

DRUGS (53)
  1. BISOPROLOL [Concomitant]
     Active Substance: BISOPROLOL
     Indication: HYPERTENSION
     Route: 065
     Dates: start: 20160325
  2. ACETAMINOPHEN. [Concomitant]
     Active Substance: ACETAMINOPHEN
     Indication: PAIN
     Route: 065
     Dates: start: 20170301, end: 20170301
  3. CODEINE PHOSPHATE [Concomitant]
     Active Substance: CODEINE PHOSPHATE
     Indication: COUGH
     Route: 065
     Dates: start: 20170104, end: 20170118
  4. INSULIN R [Concomitant]
     Indication: DIABETES MELLITUS
     Dosage: INSULIN R-HM
     Route: 065
     Dates: start: 20161213
  5. PYRIDOXINE HCL [Concomitant]
     Active Substance: PYRIDOXINE HYDROCHLORIDE
     Indication: THALASSAEMIA
     Route: 065
     Dates: start: 20140416
  6. ACETAMINOPHEN. [Concomitant]
     Active Substance: ACETAMINOPHEN
     Indication: HEADACHE
     Route: 065
     Dates: start: 20170119
  7. ETOFENAMATE [Concomitant]
     Active Substance: ETOFENAMATE
     Indication: BACK PAIN
     Route: 065
     Dates: start: 20161005
  8. SODIUM BICARBONATE. [Concomitant]
     Active Substance: SODIUM BICARBONATE
     Indication: DIABETIC KETOACIDOSIS
     Route: 065
     Dates: start: 20161201
  9. ACETYLCYSTEINE. [Concomitant]
     Active Substance: ACETYLCYSTEINE
     Indication: COUGH
     Route: 065
     Dates: start: 20161211, end: 20161227
  10. BROWN MIXTURE (TAIWAN) [Concomitant]
     Indication: COUGH
     Route: 065
     Dates: start: 20161203, end: 20170203
  11. NYSTATIN. [Concomitant]
     Active Substance: NYSTATIN
     Indication: PROPHYLAXIS
     Route: 065
     Dates: start: 20170121, end: 20170203
  12. CELECOXIB. [Concomitant]
     Active Substance: CELECOXIB
     Indication: OSTEOARTHRITIS
     Route: 065
     Dates: start: 20170203
  13. ZINC OXIDE. [Concomitant]
     Active Substance: ZINC OXIDE
     Indication: PRURITUS
     Route: 065
     Dates: start: 20170215
  14. CHLORZOXAZONE. [Concomitant]
     Active Substance: CHLORZOXAZONE
     Indication: OSTEOARTHRITIS
     Route: 065
     Dates: start: 20170215
  15. NICAMETATE [Concomitant]
     Active Substance: NICAMETATE
     Indication: PROPHYLAXIS
     Route: 065
     Dates: start: 20170301
  16. ACARBOSE. [Concomitant]
     Active Substance: ACARBOSE
     Indication: DIABETES MELLITUS
     Route: 065
     Dates: start: 20170308
  17. AMLODIPINE [Concomitant]
     Active Substance: AMLODIPINE BESYLATE
     Indication: HYPERTENSION
     Route: 065
     Dates: start: 20151104
  18. BACLOFEN. [Concomitant]
     Active Substance: BACLOFEN
     Indication: BACK PAIN
     Route: 065
     Dates: start: 20160427
  19. CALCIUM ACETATE. [Concomitant]
     Active Substance: CALCIUM ACETATE
     Indication: OSTEOARTHRITIS
     Route: 065
     Dates: start: 20150605
  20. GLUCOSAMINE SULFATE [Concomitant]
     Active Substance: GLUCOSAMINE SULFATE
     Indication: OSTEOARTHRITIS
     Route: 065
     Dates: start: 20140625
  21. PARIET [Concomitant]
     Active Substance: RABEPRAZOLE SODIUM
     Indication: PROPHYLAXIS
     Dosage: PARIET EC
     Route: 065
     Dates: start: 20160817, end: 20170104
  22. EUCLIDAN [Concomitant]
     Indication: PROPHYLAXIS
     Route: 065
     Dates: start: 20161102
  23. VALTREX [Concomitant]
     Active Substance: VALACYCLOVIR HYDROCHLORIDE
     Indication: HERPES ZOSTER
     Route: 065
     Dates: start: 20170118, end: 20170213
  24. ALLEGRA [Concomitant]
     Active Substance: FEXOFENADINE HYDROCHLORIDE
     Indication: PRURITUS
     Route: 065
     Dates: start: 20170215
  25. POTASSIUM GLUCONATE [Concomitant]
     Active Substance: POTASSIUM GLUCONATE
     Indication: HYPOKALAEMIA
     Route: 065
     Dates: start: 20170119, end: 20170120
  26. NEURONTIN (TAIWAN) [Concomitant]
     Indication: OSTEOARTHRITIS
     Route: 065
     Dates: start: 20170203
  27. METFORMIN [Concomitant]
     Active Substance: METFORMIN HYDROCHLORIDE
     Indication: DIABETES MELLITUS
     Route: 065
     Dates: start: 20170303
  28. ATEZOLIZUMAB [Suspect]
     Active Substance: ATEZOLIZUMAB
     Indication: BREAST CANCER METASTATIC
     Dosage: DATE OF MOST RECENT DOSE BEFORE SAE: 04/JAN/2017. LAST DOSE BEFORE SAE - 840 MG?MOST RECENT DOSE PRI
     Route: 042
     Dates: start: 20160803
  29. FLURBIPROFEN. [Concomitant]
     Active Substance: FLURBIPROFEN
     Indication: BACK PAIN
     Route: 062
     Dates: start: 20160929
  30. BROWN MIXTURE (TAIWAN) [Concomitant]
     Route: 065
     Dates: start: 20170124, end: 20170203
  31. SENNOSIDES. [Concomitant]
     Active Substance: SENNOSIDES
     Indication: ABDOMINAL DISTENSION
     Route: 065
     Dates: start: 20161203, end: 20161230
  32. MAGNESIUM SULFATE. [Concomitant]
     Active Substance: MAGNESIUM SULFATE
     Indication: HYPOMAGNESAEMIA
     Route: 065
     Dates: start: 20161221, end: 20170105
  33. BROEN-C [Concomitant]
     Indication: COUGH
     Route: 065
     Dates: start: 20170104, end: 20170118
  34. ALLEGRA [Concomitant]
     Active Substance: FEXOFENADINE HYDROCHLORIDE
     Indication: HERPES ZOSTER
     Route: 065
     Dates: start: 20170118, end: 20170121
  35. ALENDRONIC ACID [Concomitant]
     Active Substance: ALENDRONIC ACID
     Indication: OSTEOARTHRITIS
     Route: 065
     Dates: start: 20140124
  36. HUMULIN R [Concomitant]
     Active Substance: INSULIN HUMAN
     Indication: DIABETIC KETOACIDOSIS
     Route: 065
     Dates: start: 20161201
  37. CHLORAMPHENICOL [Concomitant]
     Active Substance: CHLORAMPHENICOL
     Indication: CONJUNCTIVITIS
     Route: 065
     Dates: start: 20161228
  38. INSULIN HUMULIN NPH [Concomitant]
     Indication: DIABETES MELLITUS
     Route: 065
     Dates: start: 20161213
  39. DELCOPAN [Concomitant]
     Indication: COUGH
     Route: 065
     Dates: start: 20161228, end: 20170118
  40. COLECALCIFEROL [Concomitant]
     Active Substance: CHOLECALCIFEROL
     Indication: OSTEOARTHRITIS
     Route: 065
     Dates: start: 20140124
  41. RANITIDINE. [Concomitant]
     Active Substance: RANITIDINE
     Indication: PROPHYLAXIS
     Route: 065
     Dates: start: 20160725
  42. ACETYLCYSTEINE. [Concomitant]
     Active Substance: ACETYLCYSTEINE
     Dosage: ACETYLCYSTEINE A EFFE
     Route: 065
     Dates: start: 20170301, end: 20170320
  43. BROWN MIXTURE (TAIWAN) [Concomitant]
     Route: 065
     Dates: start: 20161203, end: 20161227
  44. ACYCLOVIR. [Concomitant]
     Active Substance: ACYCLOVIR
     Indication: HERPES ZOSTER
     Route: 065
     Dates: start: 20170118, end: 20170204
  45. NOVAMIN (TAIWAN) [Concomitant]
     Indication: DIZZINESS
     Route: 065
     Dates: start: 20170119, end: 20170120
  46. POTASSIUM CHLORIDE. [Concomitant]
     Active Substance: POTASSIUM CHLORIDE
     Indication: HYPOKALAEMIA
     Route: 065
     Dates: start: 20170121, end: 20170123
  47. NAB-PACLITAXEL [Suspect]
     Active Substance: PACLITAXEL
     Indication: BREAST CANCER METASTATIC
     Dosage: DOSE OF LAST NAB-PACLITAXEL PRIOR TO ONSET OF FEVER AND PNEUMONIA: 04/JAN/2017: 179 MG?MOST RECENT D
     Route: 042
     Dates: start: 20160803
  48. PREGABALIN. [Concomitant]
     Active Substance: PREGABALIN
     Indication: BACK PAIN
     Route: 065
     Dates: start: 20160427
  49. ACETAMINOPHEN/TRAMADOL HYDROCHLORIDE [Concomitant]
     Active Substance: ACETAMINOPHEN\TRAMADOL HYDROCHLORIDE
     Indication: BACK PAIN
     Dosage: TRAMADOL 37.5 MG + ACETAMINOPHEN 325 MG
     Route: 065
     Dates: start: 20160623
  50. MUBROXOL [Concomitant]
     Indication: COUGH
     Route: 065
     Dates: start: 20161228, end: 20170104
  51. SILVER SULFADIAZINE. [Concomitant]
     Active Substance: SILVER SULFADIAZINE
     Indication: HERPES ZOSTER
     Route: 065
     Dates: start: 20170203, end: 20170206
  52. ULTRACET [Concomitant]
     Active Substance: ACETAMINOPHEN\TRAMADOL HYDROCHLORIDE
     Indication: OSTEOARTHRITIS
     Route: 065
     Dates: start: 20170208
  53. GABAPENTIN. [Concomitant]
     Active Substance: GABAPENTIN
     Indication: PAIN
     Route: 065
     Dates: start: 20170301

REACTIONS (3)
  - Cellulitis [Not Recovered/Not Resolved]
  - Pyrexia [Recovered/Resolved]
  - Pneumonia [Recovered/Resolved]

NARRATIVE: CASE EVENT DATE: 20170119
